FAERS Safety Report 19429488 (Version 1)
Quarter: 2021Q2

REPORT INFORMATION
  Report Type: Report from Study
  Country: US (occurrence: US)
  Receive Date: 20210617
  Receipt Date: 20210617
  Transmission Date: 20210717
  Serious: No
  Sender: FDA-Public Use
  Company Number: NVSC2021US135111

PATIENT
  Age: 57 Year
  Sex: Female

DRUGS (1)
  1. ANASTROZOLE. [Suspect]
     Active Substance: ANASTROZOLE
     Indication: BREAST CANCER
     Dosage: UNK
     Route: 065
     Dates: start: 201812

REACTIONS (5)
  - Fatigue [Unknown]
  - Libido decreased [Unknown]
  - Dyspareunia [Unknown]
  - Memory impairment [Unknown]
  - Blister [Unknown]

NARRATIVE: CASE EVENT DATE: 201812
